FAERS Safety Report 6283788-7 (Version None)
Quarter: 2009Q3

REPORT INFORMATION
  Report Type: 
  Country: None (occurrence: None)
  Receive Date: 20090724
  Receipt Date: 20070710
  Transmission Date: 20100115
  Serious: Yes (Other)
  Sender: FDA-Public Use
  Company Number: US-ASTRAZENECA-2006UW11887

PATIENT
  Age: 18074 Day
  Sex: Male
  Weight: 97.1 kg

DRUGS (14)
  1. SEROQUEL [Suspect]
     Route: 048
     Dates: end: 20060408
  2. SEROQUEL [Suspect]
     Dosage: 50-1000 MG
     Route: 048
     Dates: start: 20010811
  3. ZYPREXA [Suspect]
     Route: 048
     Dates: start: 20020626
  4. GEODON [Concomitant]
     Dates: start: 20060408
  5. DEPAKOTE [Concomitant]
  6. TRILEPTAL [Concomitant]
  7. EFFEXOR [Concomitant]
  8. AMBIEN [Concomitant]
  9. MIRTAZAPINE [Concomitant]
  10. CLONAZEPAM [Concomitant]
  11. TRAZODONE [Concomitant]
     Dosage: 200-800 MG
     Dates: start: 20011013
  12. PREVACID [Concomitant]
     Dosage: 30-60 MG
     Dates: start: 20011013
  13. NEURONTIN [Concomitant]
     Dosage: 300 MG 2 IN AM AND 3 IN EVE
     Dates: start: 20030106
  14. REMERON [Concomitant]
     Dosage: 30-75 MG
     Dates: start: 20011013

REACTIONS (7)
  - DIABETES MELLITUS [None]
  - DIABETES MELLITUS INADEQUATE CONTROL [None]
  - DIABETIC FOOT [None]
  - DIABETIC NEUROPATHIC ULCER [None]
  - DIABETIC ULCER [None]
  - GLUCOSE TOLERANCE IMPAIRED [None]
  - TYPE 1 DIABETES MELLITUS [None]
